FAERS Safety Report 9781205 (Version 1)
Quarter: 2013Q4

REPORT INFORMATION
  Report Type: Spontaneous
  Country: US (occurrence: None)
  Receive Date: 20131223
  Receipt Date: 20131223
  Transmission Date: 20140711
  Serious: Yes (Life-Threatening, Hospitalization, Other)
  Sender: FDA-Public Use
  Company Number: None

PATIENT
  Age: 48 Year
  Sex: Female
  Weight: 54.43 kg

DRUGS (1)
  1. OMECLAMOX-PAK [Suspect]
     Indication: GASTROINTESTINAL BACTERIAL INFECTION
     Dosage: AM AND PM, BY MOUTH
     Dates: start: 20130304, end: 20130317

REACTIONS (6)
  - Vomiting [None]
  - Abdominal pain upper [None]
  - Diarrhoea [None]
  - Eye colour change [None]
  - Balance disorder [None]
  - Abasia [None]
